FAERS Safety Report 4820984-7 (Version None)
Quarter: 2005Q4

REPORT INFORMATION
  Report Type: 
  Country: None (occurrence: None)
  Receive Date: 20051104
  Receipt Date: 20051027
  Transmission Date: 20060501
  Serious: Yes (Other)
  Sender: FDA-Public Use
  Company Number: US-ROCHE-423095

PATIENT
  Age: 57 Year
  Sex: Male

DRUGS (5)
  1. COPEGUS [Suspect]
     Indication: HEPATITIS C
     Route: 048
     Dates: start: 20050116
  2. PEG-INTRON [Suspect]
     Indication: HEPATITIS C
     Dosage: FORMULATION: REDIPEN
     Route: 058
     Dates: start: 20050116
  3. CELEXA [Concomitant]
     Route: 048
  4. LORATADINE [Concomitant]
     Route: 048
  5. REGLAN [Concomitant]
     Dosage: FORMULATION: INJECTABLE SOLUTION

REACTIONS (2)
  - DRUG INEFFECTIVE [None]
  - SKIN CANCER [None]
